FAERS Safety Report 7093891-X (Version None)
Quarter: 2011Q1

REPORT INFORMATION
  Report Type: 
  Country: None (occurrence: None)
  Receive Date: 20101110
  Receipt Date: 20101012
  Transmission Date: 20110831
  Serious: Yes (Hospitalization, Other)
  Sender: FDA-Public Use
  Company Number: US-BAYER-201018542NA

PATIENT
  Age: 32 Year
  Sex: Female
  Weight: 61 kg

DRUGS (7)
  1. TOPROL-XL [Concomitant]
     Dates: start: 20060101, end: 20070101
  2. MICROGESTIN FE 1.5/30 [Suspect]
  3. YASMIN [Suspect]
     Indication: ACNE
     Dosage: (2003 TO 2007) ON AND OFF
     Route: 048
     Dates: start: 20030101, end: 20070101
  4. TOPROL-XL [Concomitant]
     Dates: start: 20030101, end: 20040101
  5. NSAIDS [Concomitant]
  6. YAZ [Suspect]
     Indication: ACNE
     Dosage: (2003 TO 2007) ON AND OFF
     Route: 048
     Dates: start: 20030101, end: 20070101
  7. ASCORBIC ACID [Concomitant]

REACTIONS (7)
  - THROMBOSIS [None]
  - EMOTIONAL DISTRESS [None]
  - PULMONARY EMBOLISM [None]
  - VEIN DISORDER [None]
  - ALOPECIA [None]
  - PAIN [None]
  - HAIR GROWTH ABNORMAL [None]
